FAERS Safety Report 4345628-2 (Version None)
Quarter: 2004Q2

REPORT INFORMATION
  Report Type: 
  Country: None (occurrence: None)
  Receive Date: 20040421
  Receipt Date: 20040409
  Transmission Date: 20050107
  Serious: Yes (Hospitalization)
  Sender: FDA-Public Use
  Company Number: 2004UW07201

PATIENT
  Age: 40 Year
  Sex: Male

DRUGS (3)
  1. CRESTOR [Suspect]
     Indication: BLOOD TRIGLYCERIDES INCREASED
  2. ALTACE [Concomitant]
  3. AVANDAMET [Concomitant]

REACTIONS (5)
  - DEHYDRATION [None]
  - GASTROENTERITIS [None]
  - PANCREATITIS [None]
  - POLYCYTHAEMIA [None]
  - RENAL FAILURE [None]
